FAERS Safety Report 6108288-6 (Version None)
Quarter: 2009Q1

REPORT INFORMATION
  Report Type: 
  Country: None (occurrence: None)
  Receive Date: 20090309
  Receipt Date: 20090130
  Transmission Date: 20090719
  Serious: Yes (Death)
  Sender: FDA-Public Use
  Company Number: US-TYCO HEALTHCARE/MALLINCKRODT-T200900364

PATIENT
  Age: 47 Year
  Sex: Female

DRUGS (5)
  1. TRAMADOL [Suspect]
     Route: 048
  2. MEPERIDINE HCL [Suspect]
     Route: 048
  3. SERTRALINE [Suspect]
     Route: 048
  4. ZOLPIDEM [Suspect]
     Route: 048
  5. ANTIHISTAMINES [Suspect]
     Route: 048

REACTIONS (2)
  - CARDIO-RESPIRATORY ARREST [None]
  - COMPLETED SUICIDE [None]
